FAERS Safety Report 19073232 (Version 2)
Quarter: 2025Q1

REPORT INFORMATION
  Report Type: Spontaneous
  Country: CA (occurrence: CA)
  Receive Date: 20210330
  Receipt Date: 20250319
  Transmission Date: 20250408
  Serious: Yes (Death, Life-Threatening, Hospitalization, Disabling, Other)
  Sender: Haleon PLC
  Company Number: CA-UCBSA-2020049517

PATIENT
  Age: 59 Year
  Sex: Female
  Weight: 68 kg

DRUGS (599)
  1. DICLOFENAC SODIUM [Suspect]
     Active Substance: DICLOFENAC SODIUM
     Indication: Product used for unknown indication
     Route: 065
  2. DICLOFENAC SODIUM [Suspect]
     Active Substance: DICLOFENAC SODIUM
     Dosage: 50 MG, QD
     Route: 065
  3. DICLOFENAC SODIUM [Suspect]
     Active Substance: DICLOFENAC SODIUM
     Route: 065
  4. DICLOFENAC SODIUM [Suspect]
     Active Substance: DICLOFENAC SODIUM
     Route: 065
  5. DICLOFENAC SODIUM [Suspect]
     Active Substance: DICLOFENAC SODIUM
     Route: 065
  6. DICLOFENAC SODIUM [Suspect]
     Active Substance: DICLOFENAC SODIUM
     Route: 065
  7. CALTRATE [Suspect]
     Active Substance: CALCIUM CARBONATE
     Indication: Product used for unknown indication
     Route: 065
  8. COSENTYX [Suspect]
     Active Substance: SECUKINUMAB
     Indication: Product used for unknown indication
     Route: 050
  9. COSENTYX [Suspect]
     Active Substance: SECUKINUMAB
     Route: 065
  10. PANTOPRAZOLE [Concomitant]
     Active Substance: PANTOPRAZOLE
     Indication: Product used for unknown indication
     Route: 065
  11. COSENTYX [Suspect]
     Active Substance: SECUKINUMAB
     Indication: Product used for unknown indication
     Route: 058
  12. COSENTYX [Suspect]
     Active Substance: SECUKINUMAB
     Route: 058
  13. HYDROCORTISONE [Suspect]
     Active Substance: HYDROCORTISONE
     Indication: Rheumatoid arthritis
     Route: 061
  14. HYDROCORTISONE [Suspect]
     Active Substance: HYDROCORTISONE
     Route: 048
  15. PANTOPRAZOLE SODIUM [Suspect]
     Active Substance: PANTOPRAZOLE SODIUM
     Indication: Product used for unknown indication
     Route: 065
  16. PANTOPRAZOLE SODIUM [Suspect]
     Active Substance: PANTOPRAZOLE SODIUM
     Route: 065
  17. DIPHENHYDRAMINE HYDROCHLORIDE [Suspect]
     Active Substance: DIPHENHYDRAMINE HYDROCHLORIDE
     Indication: Product used for unknown indication
     Route: 065
  18. DIPHENHYDRAMINE HYDROCHLORIDE [Suspect]
     Active Substance: DIPHENHYDRAMINE HYDROCHLORIDE
     Route: 065
  19. MINOCYCLINE HYDROCHLORIDE [Suspect]
     Active Substance: MINOCYCLINE HYDROCHLORIDE
     Indication: Product used for unknown indication
     Route: 065
  20. MINOCYCLINE HYDROCHLORIDE [Suspect]
     Active Substance: MINOCYCLINE HYDROCHLORIDE
     Route: 065
  21. MINOCYCLINE HYDROCHLORIDE [Suspect]
     Active Substance: MINOCYCLINE HYDROCHLORIDE
     Route: 065
  22. MINOCYCLINE HYDROCHLORIDE [Suspect]
     Active Substance: MINOCYCLINE HYDROCHLORIDE
     Route: 065
  23. MINOCYCLINE HYDROCHLORIDE [Suspect]
     Active Substance: MINOCYCLINE HYDROCHLORIDE
     Route: 065
  24. MINOCYCLINE HYDROCHLORIDE [Suspect]
     Active Substance: MINOCYCLINE HYDROCHLORIDE
     Route: 065
  25. MINOCYCLINE HYDROCHLORIDE [Suspect]
     Active Substance: MINOCYCLINE HYDROCHLORIDE
     Route: 065
  26. MINOCYCLINE HYDROCHLORIDE [Suspect]
     Active Substance: MINOCYCLINE HYDROCHLORIDE
     Route: 065
  27. ACTEMRA [Suspect]
     Active Substance: TOCILIZUMAB
     Indication: Rheumatoid arthritis
     Route: 065
  28. ACTEMRA [Suspect]
     Active Substance: TOCILIZUMAB
     Route: 042
  29. ACTEMRA [Suspect]
     Active Substance: TOCILIZUMAB
     Route: 016
  30. ACTEMRA [Suspect]
     Active Substance: TOCILIZUMAB
     Route: 058
  31. ACTEMRA [Suspect]
     Active Substance: TOCILIZUMAB
     Route: 061
  32. ALENDRONIC ACID [Suspect]
     Active Substance: ALENDRONIC ACID
     Indication: Rheumatoid arthritis
     Route: 050
  33. ALENDRONIC ACID [Suspect]
     Active Substance: ALENDRONIC ACID
     Route: 065
  34. ALENDRONIC ACID [Suspect]
     Active Substance: ALENDRONIC ACID
     Route: 065
  35. ALENDRONIC ACID [Suspect]
     Active Substance: ALENDRONIC ACID
     Route: 048
  36. ALENDRONIC ACID [Suspect]
     Active Substance: ALENDRONIC ACID
     Route: 050
  37. ALENDRONIC ACID [Suspect]
     Active Substance: ALENDRONIC ACID
     Route: 016
  38. ALENDRONIC ACID [Suspect]
     Active Substance: ALENDRONIC ACID
     Route: 050
  39. ALENDRONIC ACID [Suspect]
     Active Substance: ALENDRONIC ACID
     Route: 048
  40. ALENDRONIC ACID [Suspect]
     Active Substance: ALENDRONIC ACID
     Route: 065
  41. ALENDRONIC ACID [Suspect]
     Active Substance: ALENDRONIC ACID
     Route: 065
  42. ALENDRONIC ACID [Suspect]
     Active Substance: ALENDRONIC ACID
     Route: 065
  43. ALENDRONIC ACID [Suspect]
     Active Substance: ALENDRONIC ACID
     Route: 065
  44. OTEZLA [Suspect]
     Active Substance: APREMILAST
     Indication: Product used for unknown indication
     Dosage: 3 MG, BID
     Route: 048
  45. OTEZLA [Suspect]
     Active Substance: APREMILAST
     Route: 065
  46. OTEZLA [Suspect]
     Active Substance: APREMILAST
     Route: 048
  47. OTEZLA [Suspect]
     Active Substance: APREMILAST
     Route: 048
  48. OTEZLA [Suspect]
     Active Substance: APREMILAST
     Route: 065
  49. OTEZLA [Suspect]
     Active Substance: APREMILAST
     Dosage: 6 MG, QD (TABLET)
     Route: 050
  50. OTEZLA [Suspect]
     Active Substance: APREMILAST
     Route: 048
  51. OTEZLA [Suspect]
     Active Substance: APREMILAST
     Route: 050
  52. OTEZLA [Suspect]
     Active Substance: APREMILAST
     Route: 065
  53. OTEZLA [Suspect]
     Active Substance: APREMILAST
     Route: 065
  54. OTEZLA [Suspect]
     Active Substance: APREMILAST
     Route: 065
  55. REMICADE [Suspect]
     Active Substance: INFLIXIMAB
     Indication: Rheumatoid arthritis
     Route: 042
  56. REMICADE [Suspect]
     Active Substance: INFLIXIMAB
     Indication: Crohn^s disease
     Route: 042
  57. REMICADE [Suspect]
     Active Substance: INFLIXIMAB
     Indication: Ankylosing spondylitis
     Route: 042
  58. REMICADE [Suspect]
     Active Substance: INFLIXIMAB
     Indication: Colitis ulcerative
     Route: 065
  59. REMICADE [Suspect]
     Active Substance: INFLIXIMAB
     Route: 065
  60. REMICADE [Suspect]
     Active Substance: INFLIXIMAB
     Route: 042
  61. REMICADE [Suspect]
     Active Substance: INFLIXIMAB
     Route: 065
  62. REMICADE [Suspect]
     Active Substance: INFLIXIMAB
     Route: 050
  63. REMICADE [Suspect]
     Active Substance: INFLIXIMAB
     Route: 050
  64. REMICADE [Suspect]
     Active Substance: INFLIXIMAB
     Route: 050
  65. REMICADE [Suspect]
     Active Substance: INFLIXIMAB
     Route: 050
  66. REMICADE [Suspect]
     Active Substance: INFLIXIMAB
     Route: 050
  67. TOCILIZUMAB [Suspect]
     Active Substance: TOCILIZUMAB
     Indication: Rheumatoid arthritis
     Route: 050
  68. TOCILIZUMAB [Suspect]
     Active Substance: TOCILIZUMAB
     Route: 065
  69. TOCILIZUMAB [Suspect]
     Active Substance: TOCILIZUMAB
     Route: 042
  70. TOCILIZUMAB [Suspect]
     Active Substance: TOCILIZUMAB
     Dosage: 1 DOSAGE FORM, BID
     Route: 065
  71. TOCILIZUMAB [Suspect]
     Active Substance: TOCILIZUMAB
     Route: 065
  72. TOCILIZUMAB [Suspect]
     Active Substance: TOCILIZUMAB
     Route: 050
  73. TOCILIZUMAB [Suspect]
     Active Substance: TOCILIZUMAB
     Route: 058
  74. TOCILIZUMAB [Suspect]
     Active Substance: TOCILIZUMAB
     Route: 050
  75. TOCILIZUMAB [Suspect]
     Active Substance: TOCILIZUMAB
     Route: 016
  76. TOCILIZUMAB [Suspect]
     Active Substance: TOCILIZUMAB
     Route: 061
  77. TOCILIZUMAB [Suspect]
     Active Substance: TOCILIZUMAB
     Route: 058
  78. TOCILIZUMAB [Suspect]
     Active Substance: TOCILIZUMAB
     Route: 065
  79. TOCILIZUMAB [Suspect]
     Active Substance: TOCILIZUMAB
     Route: 048
  80. TOCILIZUMAB [Suspect]
     Active Substance: TOCILIZUMAB
     Route: 050
  81. TOCILIZUMAB [Suspect]
     Active Substance: TOCILIZUMAB
     Route: 065
  82. ORENCIA [Suspect]
     Active Substance: ABATACEPT
     Indication: Rheumatoid arthritis
     Route: 050
  83. ORENCIA [Suspect]
     Active Substance: ABATACEPT
     Route: 058
  84. ORENCIA [Suspect]
     Active Substance: ABATACEPT
     Route: 065
  85. ORENCIA [Suspect]
     Active Substance: ABATACEPT
     Route: 042
  86. ORENCIA [Suspect]
     Active Substance: ABATACEPT
     Route: 050
  87. ORENCIA [Suspect]
     Active Substance: ABATACEPT
     Route: 065
  88. DESOXIMETASONE [Suspect]
     Active Substance: DESOXIMETASONE
     Indication: Rheumatoid arthritis
     Route: 061
  89. DESOXIMETASONE [Suspect]
     Active Substance: DESOXIMETASONE
     Route: 061
  90. DESOXIMETASONE [Suspect]
     Active Substance: DESOXIMETASONE
     Route: 050
  91. DESOXIMETASONE [Suspect]
     Active Substance: DESOXIMETASONE
     Route: 048
  92. DESOXIMETASONE [Suspect]
     Active Substance: DESOXIMETASONE
     Route: 050
  93. DESOXIMETASONE [Suspect]
     Active Substance: DESOXIMETASONE
     Route: 065
  94. DESOXIMETASONE [Suspect]
     Active Substance: DESOXIMETASONE
     Route: 050
  95. DESOXIMETASONE [Suspect]
     Active Substance: DESOXIMETASONE
     Route: 003
  96. DESOXIMETASONE [Suspect]
     Active Substance: DESOXIMETASONE
     Route: 050
  97. DESOXIMETASONE [Suspect]
     Active Substance: DESOXIMETASONE
     Route: 067
  98. DESOXIMETASONE [Suspect]
     Active Substance: DESOXIMETASONE
     Route: 050
  99. DESOXIMETASONE [Suspect]
     Active Substance: DESOXIMETASONE
     Route: 058
  100. DESOXIMETASONE [Suspect]
     Active Substance: DESOXIMETASONE
     Route: 050
  101. DESOXIMETASONE [Suspect]
     Active Substance: DESOXIMETASONE
     Route: 058
  102. DESOXIMETASONE [Suspect]
     Active Substance: DESOXIMETASONE
     Route: 065
  103. DESOXIMETASONE [Suspect]
     Active Substance: DESOXIMETASONE
     Route: 065
  104. VITAMIN D3 [Concomitant]
     Active Substance: CHOLECALCIFEROL
     Indication: Product used for unknown indication
     Route: 065
  105. VITAMIN D3 [Concomitant]
     Active Substance: CHOLECALCIFEROL
     Route: 065
  106. FOLIC ACID [Suspect]
     Active Substance: FOLIC ACID
     Indication: Rheumatoid arthritis
     Route: 065
  107. FOLIC ACID [Suspect]
     Active Substance: FOLIC ACID
     Route: 048
  108. FOLIC ACID [Suspect]
     Active Substance: FOLIC ACID
     Route: 065
  109. FOLIC ACID [Suspect]
     Active Substance: FOLIC ACID
     Route: 065
  110. FOLIC ACID [Suspect]
     Active Substance: FOLIC ACID
     Route: 065
  111. FOLIC ACID [Suspect]
     Active Substance: FOLIC ACID
     Route: 065
  112. FOLIC ACID [Suspect]
     Active Substance: FOLIC ACID
     Route: 065
  113. FOLIC ACID [Suspect]
     Active Substance: FOLIC ACID
     Route: 065
  114. FOLIC ACID [Suspect]
     Active Substance: FOLIC ACID
     Route: 065
  115. FOLIC ACID [Suspect]
     Active Substance: FOLIC ACID
     Route: 065
  116. FOLIC ACID [Suspect]
     Active Substance: FOLIC ACID
     Route: 048
  117. LEFLUNOMIDE [Suspect]
     Active Substance: LEFLUNOMIDE
     Indication: Rheumatoid arthritis
     Route: 048
  118. LEFLUNOMIDE [Suspect]
     Active Substance: LEFLUNOMIDE
     Dosage: 20 MILLIGRAM, ONCE DAILY (QD)
     Route: 065
  119. LEFLUNOMIDE [Suspect]
     Active Substance: LEFLUNOMIDE
     Dosage: 20 MILLIGRAM, ONCE DAILY (QD)
     Route: 065
  120. LEFLUNOMIDE [Suspect]
     Active Substance: LEFLUNOMIDE
     Route: 065
  121. LEFLUNOMIDE [Suspect]
     Active Substance: LEFLUNOMIDE
     Route: 065
  122. LEFLUNOMIDE [Suspect]
     Active Substance: LEFLUNOMIDE
     Route: 065
  123. LEFLUNOMIDE [Suspect]
     Active Substance: LEFLUNOMIDE
     Dosage: 10 MG, QD
     Route: 065
  124. LEFLUNOMIDE [Suspect]
     Active Substance: LEFLUNOMIDE
     Dosage: 20 MG, QD
     Route: 048
  125. LEFLUNOMIDE [Suspect]
     Active Substance: LEFLUNOMIDE
     Dosage: 20 MG, QD
     Route: 048
  126. ETANERCEPT [Suspect]
     Active Substance: ETANERCEPT
     Indication: Rheumatoid arthritis
     Route: 065
  127. FOSAMAX [Suspect]
     Active Substance: ALENDRONATE SODIUM
     Indication: Rheumatoid arthritis
     Route: 050
  128. FOSAMAX [Suspect]
     Active Substance: ALENDRONATE SODIUM
     Route: 048
  129. FOSAMAX [Suspect]
     Active Substance: ALENDRONATE SODIUM
     Route: 050
  130. FOSAMAX [Suspect]
     Active Substance: ALENDRONATE SODIUM
     Route: 048
  131. FOSAMAX [Suspect]
     Active Substance: ALENDRONATE SODIUM
     Route: 050
  132. FOSAMAX [Suspect]
     Active Substance: ALENDRONATE SODIUM
     Route: 048
  133. FOSAMAX [Suspect]
     Active Substance: ALENDRONATE SODIUM
     Route: 050
  134. FOSAMAX [Suspect]
     Active Substance: ALENDRONATE SODIUM
     Route: 065
  135. FOSAMAX [Suspect]
     Active Substance: ALENDRONATE SODIUM
     Route: 050
  136. FOSAMAX [Suspect]
     Active Substance: ALENDRONATE SODIUM
     Route: 016
  137. FOSAMAX [Suspect]
     Active Substance: ALENDRONATE SODIUM
     Route: 065
  138. FOSAMAX [Suspect]
     Active Substance: ALENDRONATE SODIUM
     Route: 058
  139. GOLIMUMAB [Suspect]
     Active Substance: GOLIMUMAB
     Indication: Product used for unknown indication
     Route: 065
  140. GOLIMUMAB [Suspect]
     Active Substance: GOLIMUMAB
     Route: 058
  141. GOLIMUMAB [Suspect]
     Active Substance: GOLIMUMAB
     Route: 050
  142. GOLIMUMAB [Suspect]
     Active Substance: GOLIMUMAB
     Route: 065
  143. SARILUMAB [Suspect]
     Active Substance: SARILUMAB
     Indication: Rheumatoid arthritis
     Route: 065
  144. SARILUMAB [Suspect]
     Active Substance: SARILUMAB
     Route: 065
  145. SECUKINUMAB [Suspect]
     Active Substance: SECUKINUMAB
     Indication: Product used for unknown indication
     Route: 050
  146. SECUKINUMAB [Suspect]
     Active Substance: SECUKINUMAB
     Route: 065
  147. RITUXAN [Suspect]
     Active Substance: RITUXIMAB
     Indication: Rheumatoid arthritis
     Route: 050
  148. RITUXAN [Suspect]
     Active Substance: RITUXIMAB
     Route: 042
  149. RITUXAN [Suspect]
     Active Substance: RITUXIMAB
     Route: 050
  150. RITUXAN [Suspect]
     Active Substance: RITUXIMAB
     Route: 042
  151. SULFATHALIDINE [Suspect]
     Active Substance: PHTHALYLSULFATHIAZOLE
     Indication: Product used for unknown indication
     Route: 065
  152. SULFATHALIDINE [Suspect]
     Active Substance: PHTHALYLSULFATHIAZOLE
     Route: 065
  153. CETIRIZINE HYDROCHLORIDE [Suspect]
     Active Substance: CETIRIZINE HYDROCHLORIDE
     Indication: Rheumatoid arthritis
     Route: 065
  154. CETIRIZINE HYDROCHLORIDE [Suspect]
     Active Substance: CETIRIZINE HYDROCHLORIDE
     Indication: Off label use
     Route: 065
  155. CETIRIZINE HYDROCHLORIDE [Suspect]
     Active Substance: CETIRIZINE HYDROCHLORIDE
     Route: 065
  156. CETIRIZINE HYDROCHLORIDE [Suspect]
     Active Substance: CETIRIZINE HYDROCHLORIDE
     Route: 065
  157. CETIRIZINE HYDROCHLORIDE [Suspect]
     Active Substance: CETIRIZINE HYDROCHLORIDE
     Route: 065
  158. INFLIXIMAB [Suspect]
     Active Substance: INFLIXIMAB
     Indication: Crohn^s disease
     Route: 065
  159. INFLIXIMAB [Suspect]
     Active Substance: INFLIXIMAB
     Indication: Rheumatoid arthritis
     Route: 041
  160. INFLIXIMAB [Suspect]
     Active Substance: INFLIXIMAB
     Route: 041
  161. INFLIXIMAB [Suspect]
     Active Substance: INFLIXIMAB
     Route: 041
  162. INFLIXIMAB [Suspect]
     Active Substance: INFLIXIMAB
     Route: 041
  163. INFLIXIMAB [Suspect]
     Active Substance: INFLIXIMAB
     Route: 041
  164. INFLIXIMAB [Suspect]
     Active Substance: INFLIXIMAB
     Route: 041
  165. INFLIXIMAB [Suspect]
     Active Substance: INFLIXIMAB
     Route: 065
  166. INFLIXIMAB [Suspect]
     Active Substance: INFLIXIMAB
     Route: 065
  167. INFLIXIMAB [Suspect]
     Active Substance: INFLIXIMAB
     Route: 065
  168. DICLOFENAC [Concomitant]
     Active Substance: DICLOFENAC
     Indication: Product used for unknown indication
     Route: 065
  169. DICLOFENAC [Concomitant]
     Active Substance: DICLOFENAC
     Route: 047
  170. DICLOFENAC [Concomitant]
     Active Substance: DICLOFENAC
     Route: 065
  171. DICLOFENAC [Concomitant]
     Active Substance: DICLOFENAC
     Route: 065
  172. DICLOFENAC [Concomitant]
     Active Substance: DICLOFENAC
     Route: 065
  173. PREDNISONE [Suspect]
     Active Substance: PREDNISONE
     Indication: Condition aggravated
     Route: 065
  174. PREDNISONE [Suspect]
     Active Substance: PREDNISONE
     Indication: Rheumatoid arthritis
     Route: 065
  175. PREDNISONE [Suspect]
     Active Substance: PREDNISONE
     Indication: Disease progression
     Route: 048
  176. RITUXIMAB [Suspect]
     Active Substance: RITUXIMAB
     Indication: Rheumatoid arthritis
     Route: 050
  177. RITUXIMAB [Suspect]
     Active Substance: RITUXIMAB
     Route: 042
  178. RITUXIMAB [Suspect]
     Active Substance: RITUXIMAB
     Route: 041
  179. RITUXIMAB [Suspect]
     Active Substance: RITUXIMAB
     Route: 042
  180. RITUXIMAB [Suspect]
     Active Substance: RITUXIMAB
     Route: 050
  181. RITUXIMAB [Suspect]
     Active Substance: RITUXIMAB
     Route: 042
  182. RITUXIMAB [Suspect]
     Active Substance: RITUXIMAB
     Route: 050
  183. RITUXIMAB [Suspect]
     Active Substance: RITUXIMAB
     Route: 042
  184. RITUXIMAB [Suspect]
     Active Substance: RITUXIMAB
     Route: 041
  185. RITUXIMAB [Suspect]
     Active Substance: RITUXIMAB
     Route: 042
  186. RITUXIMAB [Suspect]
     Active Substance: RITUXIMAB
     Route: 050
  187. RITUXIMAB [Suspect]
     Active Substance: RITUXIMAB
     Route: 042
  188. RITUXIMAB [Suspect]
     Active Substance: RITUXIMAB
     Route: 050
  189. RITUXIMAB [Suspect]
     Active Substance: RITUXIMAB
     Route: 058
  190. RITUXIMAB [Suspect]
     Active Substance: RITUXIMAB
     Route: 065
  191. RITUXIMAB [Suspect]
     Active Substance: RITUXIMAB
     Route: 041
  192. RITUXIMAB [Suspect]
     Active Substance: RITUXIMAB
     Route: 041
  193. RITUXIMAB [Suspect]
     Active Substance: RITUXIMAB
     Route: 041
  194. RITUXIMAB [Suspect]
     Active Substance: RITUXIMAB
     Route: 050
  195. RITUXIMAB [Suspect]
     Active Substance: RITUXIMAB
     Route: 041
  196. RITUXIMAB [Suspect]
     Active Substance: RITUXIMAB
     Route: 050
  197. RITUXIMAB [Suspect]
     Active Substance: RITUXIMAB
     Route: 065
  198. RITUXIMAB [Suspect]
     Active Substance: RITUXIMAB
     Route: 050
  199. RITUXIMAB [Suspect]
     Active Substance: RITUXIMAB
     Route: 050
  200. SIRUKUMAB [Suspect]
     Active Substance: SIRUKUMAB
     Indication: Product used for unknown indication
     Route: 065
  201. SIRUKUMAB [Suspect]
     Active Substance: SIRUKUMAB
     Route: 065
  202. SIRUKUMAB [Suspect]
     Active Substance: SIRUKUMAB
     Route: 050
  203. SIRUKUMAB [Suspect]
     Active Substance: SIRUKUMAB
     Route: 058
  204. HYDROXYCHLOROQUINE [Suspect]
     Active Substance: HYDROXYCHLOROQUINE
     Indication: Rheumatoid arthritis
     Route: 065
  205. HYDROXYCHLOROQUINE [Suspect]
     Active Substance: HYDROXYCHLOROQUINE
     Route: 065
  206. HYDROXYCHLOROQUINE [Suspect]
     Active Substance: HYDROXYCHLOROQUINE
     Route: 065
  207. HYDROXYCHLOROQUINE [Suspect]
     Active Substance: HYDROXYCHLOROQUINE
     Route: 065
  208. HYDROXYCHLOROQUINE [Suspect]
     Active Substance: HYDROXYCHLOROQUINE
     Dosage: UNK
     Route: 065
  209. HYDROXYCHLOROQUINE [Suspect]
     Active Substance: HYDROXYCHLOROQUINE
     Dosage: UNK
     Route: 065
  210. HYDROXYCHLOROQUINE [Suspect]
     Active Substance: HYDROXYCHLOROQUINE
     Dosage: UNK
     Route: 065
  211. HYDROXYCHLOROQUINE [Suspect]
     Active Substance: HYDROXYCHLOROQUINE
     Route: 065
  212. HYDROXYCHLOROQUINE [Suspect]
     Active Substance: HYDROXYCHLOROQUINE
     Route: 065
  213. ARAVA [Suspect]
     Active Substance: LEFLUNOMIDE
     Indication: Rheumatoid arthritis
     Route: 065
  214. ARAVA [Suspect]
     Active Substance: LEFLUNOMIDE
     Route: 048
  215. ARAVA [Suspect]
     Active Substance: LEFLUNOMIDE
     Route: 048
  216. ARAVA [Suspect]
     Active Substance: LEFLUNOMIDE
     Route: 065
  217. ARAVA [Suspect]
     Active Substance: LEFLUNOMIDE
     Route: 065
  218. ARAVA [Suspect]
     Active Substance: LEFLUNOMIDE
     Route: 065
  219. ARAVA [Suspect]
     Active Substance: LEFLUNOMIDE
     Dosage: UNK
     Route: 065
  220. ARAVA [Suspect]
     Active Substance: LEFLUNOMIDE
     Route: 050
  221. ARAVA [Suspect]
     Active Substance: LEFLUNOMIDE
     Route: 065
  222. PREDNISONE [Suspect]
     Active Substance: PREDNISONE
     Indication: Rheumatoid arthritis
     Route: 050
  223. PREDNISONE [Suspect]
     Active Substance: PREDNISONE
     Indication: Condition aggravated
     Route: 065
  224. PREDNISONE [Suspect]
     Active Substance: PREDNISONE
     Indication: Disease progression
     Route: 065
  225. PREDNISONE [Suspect]
     Active Substance: PREDNISONE
     Route: 048
  226. PREDNISONE [Suspect]
     Active Substance: PREDNISONE
     Route: 050
  227. PREDNISONE [Suspect]
     Active Substance: PREDNISONE
     Route: 065
  228. PREDNISONE [Suspect]
     Active Substance: PREDNISONE
     Route: 065
  229. PREDNISONE [Suspect]
     Active Substance: PREDNISONE
     Route: 048
  230. PREDNISONE [Suspect]
     Active Substance: PREDNISONE
     Route: 061
  231. PREDNISONE [Suspect]
     Active Substance: PREDNISONE
     Route: 048
  232. PREDNISONE [Suspect]
     Active Substance: PREDNISONE
     Route: 065
  233. PREDNISONE [Suspect]
     Active Substance: PREDNISONE
     Route: 065
  234. PREDNISONE [Suspect]
     Active Substance: PREDNISONE
     Route: 048
  235. PREDNISONE [Suspect]
     Active Substance: PREDNISONE
     Route: 065
  236. PREDNISONE [Suspect]
     Active Substance: PREDNISONE
     Route: 048
  237. PREDNISONE [Suspect]
     Active Substance: PREDNISONE
     Route: 048
  238. METHOTREXATE [Suspect]
     Active Substance: METHOTREXATE
     Indication: Rheumatoid arthritis
     Dosage: 20 MG, Q24H
     Route: 065
  239. METHOTREXATE [Suspect]
     Active Substance: METHOTREXATE
     Route: 050
  240. METHOTREXATE [Suspect]
     Active Substance: METHOTREXATE
     Route: 065
  241. METHOTREXATE [Suspect]
     Active Substance: METHOTREXATE
     Route: 050
  242. METHOTREXATE [Suspect]
     Active Substance: METHOTREXATE
     Route: 048
  243. METHOTREXATE [Suspect]
     Active Substance: METHOTREXATE
     Dosage: 20 MG, QD
     Route: 058
  244. METHOTREXATE [Suspect]
     Active Substance: METHOTREXATE
     Dosage: 20 MG, QW
     Route: 048
  245. METHOTREXATE [Suspect]
     Active Substance: METHOTREXATE
     Dosage: 25 MG, Q24H
     Route: 065
  246. METHOTREXATE [Suspect]
     Active Substance: METHOTREXATE
     Route: 050
  247. METHOTREXATE [Suspect]
     Active Substance: METHOTREXATE
     Route: 058
  248. METHOTREXATE [Suspect]
     Active Substance: METHOTREXATE
     Dosage: 25 MG, QD
     Route: 050
  249. METHOTREXATE [Suspect]
     Active Substance: METHOTREXATE
     Route: 048
  250. METHOTREXATE [Suspect]
     Active Substance: METHOTREXATE
     Route: 065
  251. METHOTREXATE [Suspect]
     Active Substance: METHOTREXATE
     Route: 048
  252. METHOTREXATE [Suspect]
     Active Substance: METHOTREXATE
     Route: 065
  253. METHOTREXATE [Suspect]
     Active Substance: METHOTREXATE
     Dosage: 20 MG, QD
     Route: 048
  254. METHOTREXATE [Suspect]
     Active Substance: METHOTREXATE
     Dosage: 20 MG, QD
     Route: 048
  255. METHOTREXATE [Suspect]
     Active Substance: METHOTREXATE
     Route: 058
  256. METHOTREXATE [Suspect]
     Active Substance: METHOTREXATE
     Route: 048
  257. METHOTREXATE [Suspect]
     Active Substance: METHOTREXATE
     Route: 065
  258. METHOTREXATE [Suspect]
     Active Substance: METHOTREXATE
     Route: 050
  259. METHOTREXATE [Suspect]
     Active Substance: METHOTREXATE
     Route: 013
  260. METHOTREXATE [Suspect]
     Active Substance: METHOTREXATE
     Route: 058
  261. METHOTREXATE [Suspect]
     Active Substance: METHOTREXATE
     Dosage: 25 MG, QD
     Route: 048
  262. METHOTREXATE [Suspect]
     Active Substance: METHOTREXATE
     Dosage: 25 MG, QW
     Route: 058
  263. METHOTREXATE [Suspect]
     Active Substance: METHOTREXATE
     Route: 050
  264. METHOTREXATE [Suspect]
     Active Substance: METHOTREXATE
     Route: 016
  265. USTEKINUMAB [Suspect]
     Active Substance: USTEKINUMAB
     Indication: Product used for unknown indication
     Route: 050
  266. USTEKINUMAB [Suspect]
     Active Substance: USTEKINUMAB
     Route: 058
  267. USTEKINUMAB [Suspect]
     Active Substance: USTEKINUMAB
     Dosage: 1 DOSAGE FORM, BID
     Route: 050
  268. USTEKINUMAB [Suspect]
     Active Substance: USTEKINUMAB
     Route: 058
  269. USTEKINUMAB [Suspect]
     Active Substance: USTEKINUMAB
     Route: 058
  270. PLAQUENIL [Suspect]
     Active Substance: HYDROXYCHLOROQUINE SULFATE
     Indication: Rheumatoid arthritis
     Dosage: 400 MG, QD (TABLET)
     Route: 065
  271. CIMZIA [Suspect]
     Active Substance: CERTOLIZUMAB PEGOL
     Indication: Rheumatoid arthritis
     Route: 050
  272. CIMZIA [Suspect]
     Active Substance: CERTOLIZUMAB PEGOL
     Indication: Psoriasis
     Route: 065
  273. CIMZIA [Suspect]
     Active Substance: CERTOLIZUMAB PEGOL
     Route: 065
  274. CIMZIA [Suspect]
     Active Substance: CERTOLIZUMAB PEGOL
     Route: 058
  275. CIMZIA [Suspect]
     Active Substance: CERTOLIZUMAB PEGOL
     Route: 065
  276. CIMZIA [Suspect]
     Active Substance: CERTOLIZUMAB PEGOL
     Route: 058
  277. CIMZIA [Suspect]
     Active Substance: CERTOLIZUMAB PEGOL
     Route: 058
  278. CIMZIA [Suspect]
     Active Substance: CERTOLIZUMAB PEGOL
     Route: 048
  279. CIMZIA [Suspect]
     Active Substance: CERTOLIZUMAB PEGOL
     Route: 065
  280. CIMZIA [Suspect]
     Active Substance: CERTOLIZUMAB PEGOL
     Route: 065
  281. CIMZIA [Suspect]
     Active Substance: CERTOLIZUMAB PEGOL
     Route: 050
  282. CIMZIA [Suspect]
     Active Substance: CERTOLIZUMAB PEGOL
     Route: 065
  283. AZATHIOPRINE [Suspect]
     Active Substance: AZATHIOPRINE
     Indication: Product used for unknown indication
     Route: 065
  284. AZATHIOPRINE [Suspect]
     Active Substance: AZATHIOPRINE
     Route: 065
  285. TOPICORT [Suspect]
     Active Substance: DESOXIMETASONE
     Indication: Rheumatoid arthritis
     Route: 061
  286. TOPICORT [Suspect]
     Active Substance: DESOXIMETASONE
     Route: 061
  287. TOPICORT [Suspect]
     Active Substance: DESOXIMETASONE
     Route: 050
  288. TOPICORT [Suspect]
     Active Substance: DESOXIMETASONE
     Route: 058
  289. ASACOL [Suspect]
     Active Substance: MESALAMINE
     Indication: Crohn^s disease
     Route: 065
  290. ASACOL [Suspect]
     Active Substance: MESALAMINE
  291. LEFLUNOMIDE [Suspect]
     Active Substance: LEFLUNOMIDE
     Indication: Rheumatoid arthritis
     Route: 065
  292. LEFLUNOMIDE [Suspect]
     Active Substance: LEFLUNOMIDE
     Indication: Condition aggravated
     Route: 065
  293. LEFLUNOMIDE [Suspect]
     Active Substance: LEFLUNOMIDE
     Route: 065
  294. LEFLUNOMIDE [Suspect]
     Active Substance: LEFLUNOMIDE
     Dosage: 20 MG, QD (TABLET)
     Route: 065
  295. MORPHINE SULFATE [Suspect]
     Active Substance: MORPHINE SULFATE
     Indication: Product used for unknown indication
     Route: 065
  296. MORPHINE SULFATE [Suspect]
     Active Substance: MORPHINE SULFATE
     Route: 065
  297. ADALIMUMAB [Suspect]
     Active Substance: ADALIMUMAB
     Indication: Rheumatoid arthritis
     Route: 065
  298. ADALIMUMAB [Suspect]
     Active Substance: ADALIMUMAB
     Route: 058
  299. ADALIMUMAB [Suspect]
     Active Substance: ADALIMUMAB
     Route: 050
  300. ADALIMUMAB [Suspect]
     Active Substance: ADALIMUMAB
  301. HYRIMOZ [Suspect]
     Active Substance: ADALIMUMAB-ADAZ
     Indication: Rheumatoid arthritis
     Route: 065
  302. HYDROCORTISONE ACETATE [Suspect]
     Active Substance: HYDROCORTISONE ACETATE
     Indication: Rheumatoid arthritis
     Route: 048
  303. HYDROCORTISONE ACETATE [Suspect]
     Active Substance: HYDROCORTISONE ACETATE
     Route: 061
  304. HYDROCORTISONE ACETATE [Suspect]
     Active Substance: HYDROCORTISONE ACETATE
     Dosage: 25 MG, QD
     Route: 048
  305. HYDROCORTISONE ACETATE [Suspect]
     Active Substance: HYDROCORTISONE ACETATE
     Dosage: 25 MG, QD
     Route: 061
  306. HYDROCORTISONE ACETATE [Suspect]
     Active Substance: HYDROCORTISONE ACETATE
     Route: 065
  307. HYDROCORTISONE ACETATE [Suspect]
     Active Substance: HYDROCORTISONE ACETATE
     Route: 048
  308. HYDROCORTISONE ACETATE [Suspect]
     Active Substance: HYDROCORTISONE ACETATE
     Route: 050
  309. HYDROCORTISONE ACETATE [Suspect]
     Active Substance: HYDROCORTISONE ACETATE
     Route: 061
  310. HYDROCORTISONE ACETATE [Suspect]
     Active Substance: HYDROCORTISONE ACETATE
     Route: 061
  311. HYDROCORTISONE ACETATE [Suspect]
     Active Substance: HYDROCORTISONE ACETATE
     Route: 065
  312. ERELZI [Suspect]
     Active Substance: ETANERCEPT-SZZS
     Indication: Rheumatoid arthritis
     Route: 065
  313. ERELZI [Suspect]
     Active Substance: ETANERCEPT-SZZS
     Route: 065
  314. ERELZI [Suspect]
     Active Substance: ETANERCEPT-SZZS
     Route: 065
  315. ERELZI [Suspect]
     Active Substance: ETANERCEPT-SZZS
     Route: 065
  316. ERELZI [Suspect]
     Active Substance: ETANERCEPT-SZZS
     Route: 050
  317. ERELZI [Suspect]
     Active Substance: ETANERCEPT-SZZS
     Route: 065
  318. ERELZI [Suspect]
     Active Substance: ETANERCEPT-SZZS
     Route: 065
  319. ERELZI [Suspect]
     Active Substance: ETANERCEPT-SZZS
     Route: 065
  320. ERELZI [Suspect]
     Active Substance: ETANERCEPT-SZZS
     Route: 065
  321. ERELZI [Suspect]
     Active Substance: ETANERCEPT-SZZS
     Route: 058
  322. ERELZI [Suspect]
     Active Substance: ETANERCEPT-SZZS
     Route: 065
  323. ERELZI [Suspect]
     Active Substance: ETANERCEPT-SZZS
     Dosage: 50 MG, QW
     Route: 058
  324. ERELZI [Suspect]
     Active Substance: ETANERCEPT-SZZS
     Indication: Rheumatoid arthritis
  325. PREDNISONE [Suspect]
     Active Substance: PREDNISONE
     Indication: Rheumatoid arthritis
     Route: 065
  326. PREDNISONE [Suspect]
     Active Substance: PREDNISONE
     Indication: Condition aggravated
     Route: 048
  327. PREDNISONE [Suspect]
     Active Substance: PREDNISONE
     Indication: Disease progression
     Route: 050
  328. PREDNISONE [Suspect]
     Active Substance: PREDNISONE
     Route: 048
  329. PREDNISONE [Suspect]
     Active Substance: PREDNISONE
     Route: 050
  330. PREDNISONE [Suspect]
     Active Substance: PREDNISONE
     Route: 065
  331. PREDNISONE [Suspect]
     Active Substance: PREDNISONE
     Route: 050
  332. PREDNISONE [Suspect]
     Active Substance: PREDNISONE
     Route: 065
  333. PREDNISONE [Suspect]
     Active Substance: PREDNISONE
     Route: 065
  334. PREDNISONE [Suspect]
     Active Substance: PREDNISONE
     Route: 065
  335. PREDNISONE [Suspect]
     Active Substance: PREDNISONE
     Route: 065
  336. PREDNISONE [Suspect]
     Active Substance: PREDNISONE
     Route: 065
  337. PREDNISONE [Suspect]
     Active Substance: PREDNISONE
     Route: 050
  338. PREDNISONE [Suspect]
     Active Substance: PREDNISONE
     Route: 061
  339. PREDNISONE [Suspect]
     Active Substance: PREDNISONE
     Route: 065
  340. PREDNISONE [Suspect]
     Active Substance: PREDNISONE
     Route: 065
  341. PREDNISONE [Suspect]
     Active Substance: PREDNISONE
     Route: 065
  342. LORAZEPAM [Concomitant]
     Active Substance: LORAZEPAM
     Indication: Product used for unknown indication
     Route: 065
  343. DICLOFENAC POTASSIUM [Suspect]
     Active Substance: DICLOFENAC POTASSIUM
     Indication: Product used for unknown indication
     Route: 065
  344. DICLOFENAC POTASSIUM [Suspect]
     Active Substance: DICLOFENAC POTASSIUM
     Route: 065
  345. QUETIAPINE FUMARATE [Suspect]
     Active Substance: QUETIAPINE FUMARATE
     Indication: Product used for unknown indication
     Route: 065
  346. QUETIAPINE FUMARATE [Suspect]
     Active Substance: QUETIAPINE FUMARATE
     Route: 065
  347. ERGOCALCIFEROL [Suspect]
     Active Substance: ERGOCALCIFEROL
     Indication: Product used for unknown indication
     Route: 065
  348. ERGOCALCIFEROL [Suspect]
     Active Substance: ERGOCALCIFEROL
     Route: 065
  349. ACETAMINOPHEN [Suspect]
     Active Substance: ACETAMINOPHEN
     Indication: Product used for unknown indication
     Route: 065
  350. ACETAMINOPHEN [Suspect]
     Active Substance: ACETAMINOPHEN
     Route: 065
  351. ACETAMINOPHEN [Suspect]
     Active Substance: ACETAMINOPHEN
     Route: 065
  352. ACETAMINOPHEN [Suspect]
     Active Substance: ACETAMINOPHEN
     Route: 065
  353. ACETAMINOPHEN [Suspect]
     Active Substance: ACETAMINOPHEN
     Route: 065
  354. ACETAMINOPHEN [Suspect]
     Active Substance: ACETAMINOPHEN
     Route: 065
  355. ACETAMINOPHEN [Suspect]
     Active Substance: ACETAMINOPHEN
     Route: 065
  356. ACETAMINOPHEN [Suspect]
     Active Substance: ACETAMINOPHEN
     Route: 065
  357. ACETAMINOPHEN [Suspect]
     Active Substance: ACETAMINOPHEN
     Route: 065
  358. ACETAMINOPHEN [Suspect]
     Active Substance: ACETAMINOPHEN
     Route: 065
  359. CORTISONE [Suspect]
     Active Substance: CORTISONE
     Indication: Rheumatoid arthritis
     Route: 065
  360. CORTISONE [Suspect]
     Active Substance: CORTISONE
  361. CERTOLIZUMAB PEGOL [Suspect]
     Active Substance: CERTOLIZUMAB PEGOL
     Indication: Rheumatoid arthritis
     Route: 058
  362. CERTOLIZUMAB PEGOL [Suspect]
     Active Substance: CERTOLIZUMAB PEGOL
     Route: 065
  363. CERTOLIZUMAB PEGOL [Suspect]
     Active Substance: CERTOLIZUMAB PEGOL
     Route: 065
  364. CERTOLIZUMAB PEGOL [Suspect]
     Active Substance: CERTOLIZUMAB PEGOL
     Route: 050
  365. CERTOLIZUMAB PEGOL [Suspect]
     Active Substance: CERTOLIZUMAB PEGOL
     Route: 058
  366. HYDROXYCHLOROQUINE SULFATE [Suspect]
     Active Substance: HYDROXYCHLOROQUINE SULFATE
     Indication: Rheumatoid arthritis
     Route: 065
  367. HYDROXYCHLOROQUINE SULFATE [Suspect]
     Active Substance: HYDROXYCHLOROQUINE SULFATE
     Route: 065
  368. HYDROXYCHLOROQUINE SULFATE [Suspect]
     Active Substance: HYDROXYCHLOROQUINE SULFATE
     Route: 065
  369. HYDROXYCHLOROQUINE SULFATE [Suspect]
     Active Substance: HYDROXYCHLOROQUINE SULFATE
     Route: 065
  370. HYDROXYCHLOROQUINE SULFATE [Suspect]
     Active Substance: HYDROXYCHLOROQUINE SULFATE
     Route: 065
  371. HYDROXYCHLOROQUINE SULFATE [Suspect]
     Active Substance: HYDROXYCHLOROQUINE SULFATE
     Route: 065
  372. HYDROXYCHLOROQUINE SULFATE [Suspect]
     Active Substance: HYDROXYCHLOROQUINE SULFATE
     Route: 065
  373. HYDROXYCHLOROQUINE SULFATE [Suspect]
     Active Substance: HYDROXYCHLOROQUINE SULFATE
     Route: 065
  374. HYDROXYCHLOROQUINE SULFATE [Suspect]
     Active Substance: HYDROXYCHLOROQUINE SULFATE
     Route: 065
  375. HYDROXYCHLOROQUINE SULFATE [Suspect]
     Active Substance: HYDROXYCHLOROQUINE SULFATE
     Route: 065
  376. HYDROXYCHLOROQUINE SULFATE [Suspect]
     Active Substance: HYDROXYCHLOROQUINE SULFATE
     Route: 065
  377. HYDROXYCHLOROQUINE SULFATE [Suspect]
     Active Substance: HYDROXYCHLOROQUINE SULFATE
     Route: 065
  378. HYDROXYCHLOROQUINE SULFATE [Suspect]
     Active Substance: HYDROXYCHLOROQUINE SULFATE
     Dosage: 400 MG, QD
     Route: 065
  379. HYDROXYCHLOROQUINE SULFATE [Suspect]
     Active Substance: HYDROXYCHLOROQUINE SULFATE
     Dosage: 400 MG, QD
     Route: 065
  380. HYDROXYCHLOROQUINE SULFATE [Suspect]
     Active Substance: HYDROXYCHLOROQUINE SULFATE
     Dosage: 400 MG, QD
     Route: 065
  381. HYDROXYCHLOROQUINE SULFATE [Suspect]
     Active Substance: HYDROXYCHLOROQUINE SULFATE
     Dosage: 400 MG, QD
     Route: 065
  382. HYDROXYCHLOROQUINE SULFATE [Suspect]
     Active Substance: HYDROXYCHLOROQUINE SULFATE
     Dosage: 400 MG, QD
     Route: 065
  383. HYDROXYCHLOROQUINE SULFATE [Suspect]
     Active Substance: HYDROXYCHLOROQUINE SULFATE
     Dosage: 40 MG, QD
     Route: 065
  384. HYDROXYCHLOROQUINE SULFATE [Suspect]
     Active Substance: HYDROXYCHLOROQUINE SULFATE
     Dosage: 420 MG, QD
     Route: 065
  385. HYDROXYCHLOROQUINE SULFATE [Suspect]
     Active Substance: HYDROXYCHLOROQUINE SULFATE
     Dosage: 400 MG, QD
     Route: 065
  386. HYDROXYCHLOROQUINE SULFATE [Suspect]
     Active Substance: HYDROXYCHLOROQUINE SULFATE
     Dosage: 400 MG
     Route: 065
  387. HYDROXYCHLOROQUINE SULFATE [Suspect]
     Active Substance: HYDROXYCHLOROQUINE SULFATE
     Dosage: 40 MG, QD
     Route: 065
  388. HYDROXYCHLOROQUINE SULFATE [Suspect]
     Active Substance: HYDROXYCHLOROQUINE SULFATE
     Route: 065
  389. HYDROXYCHLOROQUINE SULFATE [Suspect]
     Active Substance: HYDROXYCHLOROQUINE SULFATE
     Dosage: 400 MG, QD (TABLET)
     Route: 065
  390. HUMIRA [Suspect]
     Active Substance: ADALIMUMAB
     Indication: Rheumatoid arthritis
     Route: 065
  391. HUMIRA [Suspect]
     Active Substance: ADALIMUMAB
     Route: 065
  392. HUMIRA [Suspect]
     Active Substance: ADALIMUMAB
     Route: 065
  393. HUMIRA [Suspect]
     Active Substance: ADALIMUMAB
     Dosage: 400 MG, QW
     Route: 065
  394. HUMIRA [Suspect]
     Active Substance: ADALIMUMAB
     Route: 058
  395. HUMIRA [Suspect]
     Active Substance: ADALIMUMAB
     Route: 058
  396. HUMIRA [Suspect]
     Active Substance: ADALIMUMAB
     Route: 050
  397. HUMIRA [Suspect]
     Active Substance: ADALIMUMAB
     Route: 058
  398. PREDNISONE [Suspect]
     Active Substance: PREDNISONE
     Indication: Rheumatoid arthritis
     Route: 050
  399. PREDNISONE [Suspect]
     Active Substance: PREDNISONE
     Route: 048
  400. VITAMIN C [Suspect]
     Active Substance: ASCORBIC ACID
     Indication: Product used for unknown indication
     Route: 065
  401. VITAMIN C [Suspect]
     Active Substance: ASCORBIC ACID
     Route: 065
  402. VITAMIN C [Suspect]
     Active Substance: ASCORBIC ACID
     Route: 065
  403. CORTISONE ACETATE [Suspect]
     Active Substance: CORTISONE ACETATE
     Indication: Rheumatoid arthritis
     Route: 065
  404. CORTISONE ACETATE [Suspect]
     Active Substance: CORTISONE ACETATE
     Route: 048
  405. CORTISONE ACETATE [Suspect]
     Active Substance: CORTISONE ACETATE
     Route: 065
  406. CORTISONE ACETATE [Suspect]
     Active Substance: CORTISONE ACETATE
     Route: 065
  407. CORTISONE ACETATE [Suspect]
     Active Substance: CORTISONE ACETATE
     Route: 061
  408. CORTISONE ACETATE [Suspect]
     Active Substance: CORTISONE ACETATE
     Route: 065
  409. CORTISONE ACETATE [Suspect]
     Active Substance: CORTISONE ACETATE
     Route: 065
  410. CORTISONE ACETATE [Suspect]
     Active Substance: CORTISONE ACETATE
     Route: 065
  411. CORTISONE ACETATE [Suspect]
     Active Substance: CORTISONE ACETATE
     Route: 065
  412. CORTISONE ACETATE [Suspect]
     Active Substance: CORTISONE ACETATE
     Route: 065
  413. CORTISONE ACETATE [Suspect]
     Active Substance: CORTISONE ACETATE
     Route: 065
  414. CORTISONE ACETATE [Suspect]
     Active Substance: CORTISONE ACETATE
     Route: 065
  415. CORTISONE ACETATE [Suspect]
     Active Substance: CORTISONE ACETATE
     Route: 061
  416. CORTISONE ACETATE [Suspect]
     Active Substance: CORTISONE ACETATE
     Route: 061
  417. CORTISONE ACETATE [Suspect]
     Active Substance: CORTISONE ACETATE
     Route: 061
  418. HYDROXYCHLOROQUINE SULFATE [Suspect]
     Active Substance: HYDROXYCHLOROQUINE SULFATE
     Indication: Rheumatoid arthritis
     Route: 065
  419. HYDROXYCHLOROQUINE SULFATE [Suspect]
     Active Substance: HYDROXYCHLOROQUINE SULFATE
  420. STELARA [Suspect]
     Active Substance: USTEKINUMAB
     Indication: Rheumatoid arthritis
     Dosage: SOLUTION SUBCUTANEOUS
     Route: 058
  421. STELARA [Suspect]
     Active Substance: USTEKINUMAB
     Route: 050
  422. STELARA [Suspect]
     Active Substance: USTEKINUMAB
     Route: 065
  423. STELARA [Suspect]
     Active Substance: USTEKINUMAB
     Route: 065
  424. STELARA [Suspect]
     Active Substance: USTEKINUMAB
     Route: 058
  425. SOLU-MEDROL [Suspect]
     Active Substance: METHYLPREDNISOLONE SODIUM SUCCINATE
     Indication: Product used for unknown indication
     Route: 065
  426. SOLU-MEDROL [Suspect]
     Active Substance: METHYLPREDNISOLONE SODIUM SUCCINATE
     Route: 065
  427. SOLU-MEDROL [Suspect]
     Active Substance: METHYLPREDNISOLONE SODIUM SUCCINATE
     Route: 065
  428. SOLU-MEDROL [Suspect]
     Active Substance: METHYLPREDNISOLONE SODIUM SUCCINATE
     Route: 065
  429. CETIRIZINE HYDROCHLORIDE\PSEUDOEPHEDRINE HYDROCHLORIDE [Suspect]
     Active Substance: CETIRIZINE HYDROCHLORIDE\PSEUDOEPHEDRINE HYDROCHLORIDE
     Indication: Rheumatoid arthritis
     Route: 065
  430. CETIRIZINE HYDROCHLORIDE\PSEUDOEPHEDRINE HYDROCHLORIDE [Suspect]
     Active Substance: CETIRIZINE HYDROCHLORIDE\PSEUDOEPHEDRINE HYDROCHLORIDE
     Route: 065
  431. CETIRIZINE HYDROCHLORIDE\PSEUDOEPHEDRINE HYDROCHLORIDE [Suspect]
     Active Substance: CETIRIZINE HYDROCHLORIDE\PSEUDOEPHEDRINE HYDROCHLORIDE
     Route: 065
  432. CETIRIZINE HYDROCHLORIDE\PSEUDOEPHEDRINE HYDROCHLORIDE [Suspect]
     Active Substance: CETIRIZINE HYDROCHLORIDE\PSEUDOEPHEDRINE HYDROCHLORIDE
     Route: 065
  433. CETIRIZINE HYDROCHLORIDE\PSEUDOEPHEDRINE HYDROCHLORIDE [Suspect]
     Active Substance: CETIRIZINE HYDROCHLORIDE\PSEUDOEPHEDRINE HYDROCHLORIDE
     Route: 065
  434. CETIRIZINE HYDROCHLORIDE\PSEUDOEPHEDRINE HYDROCHLORIDE [Suspect]
     Active Substance: CETIRIZINE HYDROCHLORIDE\PSEUDOEPHEDRINE HYDROCHLORIDE
     Route: 065
  435. CETIRIZINE HYDROCHLORIDE\PSEUDOEPHEDRINE HYDROCHLORIDE [Suspect]
     Active Substance: CETIRIZINE HYDROCHLORIDE\PSEUDOEPHEDRINE HYDROCHLORIDE
     Route: 050
  436. CETIRIZINE HYDROCHLORIDE\PSEUDOEPHEDRINE HYDROCHLORIDE [Suspect]
     Active Substance: CETIRIZINE HYDROCHLORIDE\PSEUDOEPHEDRINE HYDROCHLORIDE
     Route: 067
  437. CETIRIZINE HYDROCHLORIDE\PSEUDOEPHEDRINE HYDROCHLORIDE [Suspect]
     Active Substance: CETIRIZINE HYDROCHLORIDE\PSEUDOEPHEDRINE HYDROCHLORIDE
     Route: 065
  438. CETIRIZINE HYDROCHLORIDE\PSEUDOEPHEDRINE HYDROCHLORIDE [Suspect]
     Active Substance: CETIRIZINE HYDROCHLORIDE\PSEUDOEPHEDRINE HYDROCHLORIDE
     Route: 065
  439. PHTHALYLSULFATHIAZOLE [Suspect]
     Active Substance: PHTHALYLSULFATHIAZOLE
     Indication: Rheumatoid arthritis
     Route: 065
  440. PHTHALYLSULFATHIAZOLE [Suspect]
     Active Substance: PHTHALYLSULFATHIAZOLE
     Indication: Product used for unknown indication
     Route: 048
  441. PHTHALYLSULFATHIAZOLE [Suspect]
     Active Substance: PHTHALYLSULFATHIAZOLE
     Route: 065
  442. PHTHALYLSULFATHIAZOLE [Suspect]
     Active Substance: PHTHALYLSULFATHIAZOLE
     Route: 065
  443. PHTHALYLSULFATHIAZOLE [Suspect]
     Active Substance: PHTHALYLSULFATHIAZOLE
     Route: 065
  444. PHTHALYLSULFATHIAZOLE [Suspect]
     Active Substance: PHTHALYLSULFATHIAZOLE
     Dosage: 1000 MG, BID
     Route: 050
  445. PHTHALYLSULFATHIAZOLE [Suspect]
     Active Substance: PHTHALYLSULFATHIAZOLE
     Route: 065
  446. PHTHALYLSULFATHIAZOLE [Suspect]
     Active Substance: PHTHALYLSULFATHIAZOLE
     Route: 050
  447. PHTHALYLSULFATHIAZOLE [Suspect]
     Active Substance: PHTHALYLSULFATHIAZOLE
     Route: 065
  448. PHTHALYLSULFATHIAZOLE [Suspect]
     Active Substance: PHTHALYLSULFATHIAZOLE
     Route: 065
  449. PHTHALYLSULFATHIAZOLE [Suspect]
     Active Substance: PHTHALYLSULFATHIAZOLE
     Route: 048
  450. PHTHALYLSULFATHIAZOLE [Suspect]
     Active Substance: PHTHALYLSULFATHIAZOLE
     Route: 065
  451. ENBREL [Suspect]
     Active Substance: ETANERCEPT
     Indication: Rheumatoid arthritis
     Route: 065
  452. ENBREL [Suspect]
     Active Substance: ETANERCEPT
     Route: 058
  453. ENBREL [Suspect]
     Active Substance: ETANERCEPT
     Route: 065
  454. ENBREL [Suspect]
     Active Substance: ETANERCEPT
     Route: 065
  455. ENBREL [Suspect]
     Active Substance: ETANERCEPT
     Route: 065
  456. ENBREL [Suspect]
     Active Substance: ETANERCEPT
     Route: 065
  457. ENBREL [Suspect]
     Active Substance: ETANERCEPT
     Dosage: 50 MG, QW
     Route: 058
  458. ENBREL [Suspect]
     Active Substance: ETANERCEPT
     Route: 065
  459. ENBREL [Suspect]
     Active Substance: ETANERCEPT
     Route: 058
  460. ENBREL [Suspect]
     Active Substance: ETANERCEPT
     Route: 050
  461. ENBREL [Suspect]
     Active Substance: ETANERCEPT
     Route: 065
  462. ENBREL [Suspect]
     Active Substance: ETANERCEPT
     Route: 050
  463. ENBREL [Suspect]
     Active Substance: ETANERCEPT
     Route: 065
  464. ENBREL [Suspect]
     Active Substance: ETANERCEPT
     Route: 058
  465. ENBREL [Suspect]
     Active Substance: ETANERCEPT
     Route: 065
  466. ENBREL [Suspect]
     Active Substance: ETANERCEPT
     Route: 058
  467. SULFASALAZINE [Suspect]
     Active Substance: SULFASALAZINE
     Indication: Rheumatoid arthritis
     Dosage: 500 MG, Q24H
     Route: 048
  468. SULFASALAZINE [Suspect]
     Active Substance: SULFASALAZINE
     Route: 065
  469. SULFASALAZINE [Suspect]
     Active Substance: SULFASALAZINE
  470. SULFASALAZINE [Suspect]
     Active Substance: SULFASALAZINE
     Route: 050
  471. SULFASALAZINE [Suspect]
     Active Substance: SULFASALAZINE
     Dosage: 1 G, QD
     Route: 048
  472. SULFASALAZINE [Suspect]
     Active Substance: SULFASALAZINE
     Dosage: 1 MG, BID
     Route: 048
  473. SULFASALAZINE [Suspect]
     Active Substance: SULFASALAZINE
     Route: 058
  474. SULFASALAZINE [Suspect]
     Active Substance: SULFASALAZINE
     Dosage: 1 G, BID
     Route: 050
  475. SULFASALAZINE [Suspect]
     Active Substance: SULFASALAZINE
     Route: 065
  476. SULFASALAZINE [Suspect]
     Active Substance: SULFASALAZINE
     Route: 050
  477. SULFASALAZINE [Suspect]
     Active Substance: SULFASALAZINE
     Route: 048
  478. SULFASALAZINE [Suspect]
     Active Substance: SULFASALAZINE
     Route: 065
  479. SULFASALAZINE [Suspect]
     Active Substance: SULFASALAZINE
     Route: 065
  480. SULFASALAZINE [Suspect]
     Active Substance: SULFASALAZINE
     Route: 058
  481. SULFASALAZINE [Suspect]
     Active Substance: SULFASALAZINE
     Route: 048
  482. SULFASALAZINE [Suspect]
     Active Substance: SULFASALAZINE
     Dosage: 1000 MG, QD
     Route: 048
  483. SULFASALAZINE [Suspect]
     Active Substance: SULFASALAZINE
     Dosage: 1000 MG, Q24H
     Route: 048
  484. SULFASALAZINE [Suspect]
     Active Substance: SULFASALAZINE
     Route: 050
  485. SULFASALAZINE [Suspect]
     Active Substance: SULFASALAZINE
  486. SULFASALAZINE [Suspect]
     Active Substance: SULFASALAZINE
     Route: 048
  487. SULFASALAZINE [Suspect]
     Active Substance: SULFASALAZINE
     Dosage: 1000 MG, QD
     Route: 058
  488. SULFASALAZINE [Suspect]
     Active Substance: SULFASALAZINE
     Dosage: 2 MG, BID
     Route: 048
  489. SULFASALAZINE [Suspect]
     Active Substance: SULFASALAZINE
     Dosage: 500 MG, QD
     Route: 048
  490. SULFASALAZINE [Suspect]
     Active Substance: SULFASALAZINE
     Route: 065
  491. SULFASALAZINE [Suspect]
     Active Substance: SULFASALAZINE
     Dosage: 1000 MG, BID
     Route: 065
  492. SULFASALAZINE [Suspect]
     Active Substance: SULFASALAZINE
     Dosage: 1 DOSAGE FORM, QD
     Route: 065
  493. TUMS [Suspect]
     Active Substance: CALCIUM CARBONATE
     Indication: Product used for unknown indication
     Route: 065
  494. CALCIUM GLUBIONATE [Suspect]
     Active Substance: CALCIUM GLUBIONATE
     Indication: Product used for unknown indication
     Route: 065
  495. CALCIUM GLUBIONATE [Suspect]
     Active Substance: CALCIUM GLUBIONATE
     Route: 065
  496. CHLORHEXIDINE [Suspect]
     Active Substance: CHLORHEXIDINE
     Indication: Product used for unknown indication
     Route: 065
  497. CHLORHEXIDINE [Suspect]
     Active Substance: CHLORHEXIDINE
     Route: 065
  498. RAMIPRIL [Suspect]
     Active Substance: RAMIPRIL
     Indication: Product used for unknown indication
     Route: 065
  499. RAMIPRIL [Suspect]
     Active Substance: RAMIPRIL
     Route: 065
  500. PSEUDOEPHEDRINE HYDROCHLORIDE [Suspect]
     Active Substance: PSEUDOEPHEDRINE HYDROCHLORIDE
     Indication: Rheumatoid arthritis
     Route: 065
  501. PSEUDOEPHEDRINE HYDROCHLORIDE [Suspect]
     Active Substance: PSEUDOEPHEDRINE HYDROCHLORIDE
     Indication: Off label use
     Route: 065
  502. PSEUDOEPHEDRINE HYDROCHLORIDE [Suspect]
     Active Substance: PSEUDOEPHEDRINE HYDROCHLORIDE
     Route: 065
  503. PSEUDOEPHEDRINE HYDROCHLORIDE [Suspect]
     Active Substance: PSEUDOEPHEDRINE HYDROCHLORIDE
     Route: 048
  504. PSEUDOEPHEDRINE HYDROCHLORIDE [Suspect]
     Active Substance: PSEUDOEPHEDRINE HYDROCHLORIDE
     Route: 065
  505. PSEUDOEPHEDRINE HYDROCHLORIDE [Suspect]
     Active Substance: PSEUDOEPHEDRINE HYDROCHLORIDE
     Route: 065
  506. PSEUDOEPHEDRINE HYDROCHLORIDE [Suspect]
     Active Substance: PSEUDOEPHEDRINE HYDROCHLORIDE
     Route: 050
  507. PSEUDOEPHEDRINE HYDROCHLORIDE [Suspect]
     Active Substance: PSEUDOEPHEDRINE HYDROCHLORIDE
     Route: 065
  508. PSEUDOEPHEDRINE HYDROCHLORIDE [Suspect]
     Active Substance: PSEUDOEPHEDRINE HYDROCHLORIDE
     Route: 065
  509. PSEUDOEPHEDRINE HYDROCHLORIDE [Suspect]
     Active Substance: PSEUDOEPHEDRINE HYDROCHLORIDE
     Route: 065
  510. PSEUDOEPHEDRINE HYDROCHLORIDE [Suspect]
     Active Substance: PSEUDOEPHEDRINE HYDROCHLORIDE
     Dosage: 10 MG, QD
     Route: 065
  511. PSEUDOEPHEDRINE [Suspect]
     Active Substance: PSEUDOEPHEDRINE
     Indication: Rheumatoid arthritis
     Route: 065
  512. PSEUDOEPHEDRINE [Suspect]
     Active Substance: PSEUDOEPHEDRINE
     Route: 065
  513. METHYLPREDNISOLONE SODIUM SUCCINATE [Suspect]
     Active Substance: METHYLPREDNISOLONE SODIUM SUCCINATE
     Indication: Product used for unknown indication
     Route: 065
  514. METHYLPREDNISOLONE SODIUM SUCCINATE [Suspect]
     Active Substance: METHYLPREDNISOLONE SODIUM SUCCINATE
     Route: 058
  515. METHYLPREDNISOLONE SODIUM SUCCINATE [Suspect]
     Active Substance: METHYLPREDNISOLONE SODIUM SUCCINATE
     Route: 050
  516. METHYLPREDNISOLONE SODIUM SUCCINATE [Suspect]
     Active Substance: METHYLPREDNISOLONE SODIUM SUCCINATE
     Route: 065
  517. DOXYCYCLINE HYCLATE [Suspect]
     Active Substance: DOXYCYCLINE HYCLATE
     Indication: Product used for unknown indication
     Route: 065
  518. DOXYCYCLINE HYCLATE [Suspect]
     Active Substance: DOXYCYCLINE HYCLATE
  519. DOXYCYCLINE HYCLATE [Suspect]
     Active Substance: DOXYCYCLINE HYCLATE
     Route: 065
  520. DOXYCYCLINE HYCLATE [Suspect]
     Active Substance: DOXYCYCLINE HYCLATE
  521. KEVZARA [Suspect]
     Active Substance: SARILUMAB
     Indication: Rheumatoid arthritis
     Route: 065
  522. HYRIMOZ [Suspect]
     Active Substance: ADALIMUMAB-ADAZ
     Indication: Rheumatoid arthritis
     Route: 065
  523. VITAMIN D3 [Suspect]
     Active Substance: CHOLECALCIFEROL
     Indication: Product used for unknown indication
     Route: 065
  524. VITAMIN D3 [Suspect]
     Active Substance: CHOLECALCIFEROL
  525. SIMPONI [Suspect]
     Active Substance: GOLIMUMAB
     Indication: Rheumatoid arthritis
     Route: 050
  526. SIMPONI [Suspect]
     Active Substance: GOLIMUMAB
     Route: 058
  527. SIMPONI [Suspect]
     Active Substance: GOLIMUMAB
     Route: 050
  528. SIMPONI [Suspect]
     Active Substance: GOLIMUMAB
     Route: 058
  529. SIMPONI [Suspect]
     Active Substance: GOLIMUMAB
     Route: 058
  530. SIMPONI [Suspect]
     Active Substance: GOLIMUMAB
     Dosage: 50 MG, QMO (SOLUTION FOR INJECTION IN PRE-FILLED PEN)
     Route: 050
  531. SIMPONI [Suspect]
     Active Substance: GOLIMUMAB
     Dosage: 50 MG, QMO
     Route: 065
  532. SIMPONI [Suspect]
     Active Substance: GOLIMUMAB
     Route: 058
  533. SIMPONI [Suspect]
     Active Substance: GOLIMUMAB
     Route: 065
  534. LEVOCETIRIZINE HYDROCHLORIDE [Suspect]
     Active Substance: LEVOCETIRIZINE HYDROCHLORIDE
     Indication: Product used for unknown indication
     Route: 065
  535. LEVOCETIRIZINE HYDROCHLORIDE [Suspect]
     Active Substance: LEVOCETIRIZINE HYDROCHLORIDE
     Route: 065
  536. ALENDRONATE SODIUM [Suspect]
     Active Substance: ALENDRONATE SODIUM
     Indication: Rheumatoid arthritis
     Route: 065
  537. ALENDRONATE SODIUM [Suspect]
     Active Substance: ALENDRONATE SODIUM
  538. ALENDRONATE SODIUM [Suspect]
     Active Substance: ALENDRONATE SODIUM
     Route: 050
  539. ALENDRONATE SODIUM [Suspect]
     Active Substance: ALENDRONATE SODIUM
     Route: 065
  540. CALCIUM CARBONATE [Suspect]
     Active Substance: CALCIUM CARBONATE
     Indication: Product used for unknown indication
     Route: 065
  541. WELLBUTRIN [Concomitant]
     Active Substance: BUPROPION HYDROCHLORIDE
     Indication: Product used for unknown indication
     Route: 065
  542. WELLBUTRIN [Concomitant]
     Active Substance: BUPROPION HYDROCHLORIDE
     Route: 065
  543. BUPROPION HYDROCHLORIDE [Concomitant]
     Active Substance: BUPROPION HYDROCHLORIDE
     Indication: Product used for unknown indication
     Route: 065
  544. BUPROPION HYDROCHLORIDE [Concomitant]
     Active Substance: BUPROPION HYDROCHLORIDE
     Route: 065
  545. BUPROPION HYDROCHLORIDE [Concomitant]
     Active Substance: BUPROPION HYDROCHLORIDE
     Route: 065
  546. HYDROMORPHONE HYDROCHLORIDE [Concomitant]
     Active Substance: HYDROMORPHONE HYDROCHLORIDE
     Indication: Product used for unknown indication
     Route: 065
  547. SULFASALAZINE [Concomitant]
     Active Substance: SULFASALAZINE
     Indication: Product used for unknown indication
     Route: 065
  548. SULFASALAZINE [Concomitant]
     Active Substance: SULFASALAZINE
     Route: 065
  549. SULFASALAZINE [Concomitant]
     Active Substance: SULFASALAZINE
     Route: 050
  550. SULFASALAZINE [Concomitant]
     Active Substance: SULFASALAZINE
     Route: 065
  551. SULFASALAZINE [Concomitant]
     Active Substance: SULFASALAZINE
     Route: 065
  552. IBUPROFEN [Concomitant]
     Active Substance: IBUPROFEN
     Indication: Product used for unknown indication
     Route: 065
  553. IBUPROFEN [Concomitant]
     Active Substance: IBUPROFEN
     Route: 065
  554. IBUPROFEN [Concomitant]
     Active Substance: IBUPROFEN
     Route: 065
  555. LISINOPRIL [Concomitant]
     Active Substance: LISINOPRIL
     Indication: Product used for unknown indication
     Route: 065
  556. LISINOPRIL [Concomitant]
     Active Substance: LISINOPRIL
     Route: 065
  557. LISINOPRIL [Concomitant]
     Active Substance: LISINOPRIL
     Route: 065
  558. TOFACITINIB CITRATE [Concomitant]
     Active Substance: TOFACITINIB CITRATE
     Indication: Product used for unknown indication
     Dosage: 5 MG, QW
     Route: 050
  559. TOFACITINIB CITRATE [Concomitant]
     Active Substance: TOFACITINIB CITRATE
     Route: 065
  560. TOFACITINIB CITRATE [Concomitant]
     Active Substance: TOFACITINIB CITRATE
     Route: 065
  561. TOFACITINIB CITRATE [Concomitant]
     Active Substance: TOFACITINIB CITRATE
     Dosage: 5 MG, QD
     Route: 050
  562. DILAUDID [Concomitant]
     Active Substance: HYDROMORPHONE HYDROCHLORIDE
     Indication: Pain
     Route: 065
  563. DILAUDID [Concomitant]
     Active Substance: HYDROMORPHONE HYDROCHLORIDE
     Indication: Product used for unknown indication
     Route: 065
  564. XELJANZ [Concomitant]
     Active Substance: TOFACITINIB CITRATE
     Indication: Rheumatoid arthritis
     Dosage: 5 MG, QD
     Route: 065
  565. XELJANZ [Concomitant]
     Active Substance: TOFACITINIB CITRATE
     Indication: Product used for unknown indication
     Route: 065
  566. XELJANZ [Concomitant]
     Active Substance: TOFACITINIB CITRATE
     Dosage: 5 MG, BID
     Route: 050
  567. XELJANZ [Concomitant]
     Active Substance: TOFACITINIB CITRATE
     Route: 065
  568. XELJANZ [Concomitant]
     Active Substance: TOFACITINIB CITRATE
     Dosage: 4 MG, BID
     Route: 050
  569. XELJANZ [Concomitant]
     Active Substance: TOFACITINIB CITRATE
     Dosage: 5 MG, BID (TABLET)
     Route: 065
  570. XELJANZ [Concomitant]
     Active Substance: TOFACITINIB CITRATE
     Route: 065
  571. XELJANZ [Concomitant]
     Active Substance: TOFACITINIB CITRATE
     Dosage: 5 MG, BID
     Route: 050
  572. XELJANZ [Concomitant]
     Active Substance: TOFACITINIB CITRATE
     Route: 065
  573. XELJANZ [Concomitant]
     Active Substance: TOFACITINIB CITRATE
     Route: 050
  574. XELJANZ [Concomitant]
     Active Substance: TOFACITINIB CITRATE
     Dosage: 5 MG, QD
     Route: 065
  575. XELJANZ [Concomitant]
     Active Substance: TOFACITINIB CITRATE
     Dosage: 5 MG, BID
     Route: 065
  576. XELJANZ [Concomitant]
     Active Substance: TOFACITINIB CITRATE
     Route: 065
  577. XELJANZ [Concomitant]
     Active Substance: TOFACITINIB CITRATE
     Dosage: 5 MG, BID (TABLET)
     Route: 050
  578. XELJANZ [Concomitant]
     Active Substance: TOFACITINIB CITRATE
     Dosage: 5 MG, BID
     Route: 065
  579. CAFFEINE CITRATE [Concomitant]
     Active Substance: CAFFEINE CITRATE
     Indication: Product used for unknown indication
     Route: 065
  580. CAFFEINE CITRATE [Concomitant]
     Active Substance: CAFFEINE CITRATE
     Route: 065
  581. DICLOFENAC [Concomitant]
     Active Substance: DICLOFENAC
     Indication: Product used for unknown indication
     Route: 065
  582. DICLOFENAC [Concomitant]
     Active Substance: DICLOFENAC
     Route: 047
  583. DICLOFENAC [Concomitant]
     Active Substance: DICLOFENAC
     Route: 065
  584. DICLOFENAC [Concomitant]
     Active Substance: DICLOFENAC
     Route: 065
  585. DICLOFENAC [Concomitant]
     Active Substance: DICLOFENAC
     Route: 065
  586. ATIVAN [Suspect]
     Active Substance: LORAZEPAM
     Indication: Product used for unknown indication
     Route: 065
  587. ATIVAN [Suspect]
     Active Substance: LORAZEPAM
     Route: 065
  588. ALENDRONATE SODIUM [Suspect]
     Active Substance: ALENDRONATE SODIUM
     Indication: Product used for unknown indication
     Route: 065
  589. ALENDRONATE SODIUM [Suspect]
     Active Substance: ALENDRONATE SODIUM
     Route: 065
  590. ALENDRONATE SODIUM [Suspect]
     Active Substance: ALENDRONATE SODIUM
     Route: 065
  591. ALENDRONATE SODIUM [Suspect]
     Active Substance: ALENDRONATE SODIUM
     Route: 065
  592. ALENDRONATE SODIUM [Suspect]
     Active Substance: ALENDRONATE SODIUM
     Route: 050
  593. ALENDRONATE SODIUM [Suspect]
     Active Substance: ALENDRONATE SODIUM
     Route: 048
  594. CODEINE [Concomitant]
     Active Substance: CODEINE
     Indication: Product used for unknown indication
     Route: 065
  595. CODEINE [Concomitant]
     Active Substance: CODEINE
     Route: 065
  596. CETIRIZINE HYDROCHLORIDE [Suspect]
     Active Substance: CETIRIZINE HYDROCHLORIDE
     Indication: Rheumatoid arthritis
     Route: 065
  597. CETIRIZINE HYDROCHLORIDE [Suspect]
     Active Substance: CETIRIZINE HYDROCHLORIDE
     Indication: Off label use
     Route: 065
  598. CETIRIZINE HYDROCHLORIDE [Suspect]
     Active Substance: CETIRIZINE HYDROCHLORIDE
     Route: 065
  599. CETIRIZINE HYDROCHLORIDE [Suspect]
     Active Substance: CETIRIZINE HYDROCHLORIDE
     Route: 065

REACTIONS (72)
  - Systemic lupus erythematosus [Fatal]
  - Joint stiffness [Fatal]
  - Incorrect route of product administration [Fatal]
  - Bone erosion [Fatal]
  - Pemphigus [Fatal]
  - Joint swelling [Fatal]
  - Product use issue [Fatal]
  - Upper respiratory tract infection [Fatal]
  - Nausea [Fatal]
  - Anti-cyclic citrullinated peptide antibody positive [Fatal]
  - Adverse event [Fatal]
  - Arthralgia [Fatal]
  - Mobility decreased [Fatal]
  - Anti-cyclic citrullinated peptide antibody [Fatal]
  - C-reactive protein increased [Fatal]
  - Tachycardia [Fatal]
  - Treatment failure [Fatal]
  - Infection [Fatal]
  - Product use in unapproved indication [Fatal]
  - Osteoarthritis [Fatal]
  - Headache [Fatal]
  - Exposure during pregnancy [Fatal]
  - Adverse drug reaction [Fatal]
  - Rheumatoid factor positive [Fatal]
  - Abdominal discomfort [Fatal]
  - Dizziness [Fatal]
  - Malaise [Fatal]
  - Drug intolerance [Fatal]
  - Hepatic enzyme increased [Fatal]
  - Hypoaesthesia [Fatal]
  - Exostosis [Fatal]
  - Musculoskeletal stiffness [Fatal]
  - Osteoporosis [Fatal]
  - Visual impairment [Fatal]
  - Infusion related reaction [Fatal]
  - Hepatic cirrhosis [Fatal]
  - Lupus-like syndrome [Fatal]
  - Foot deformity [Fatal]
  - Decreased appetite [Fatal]
  - Ear infection [Fatal]
  - Joint dislocation [Fatal]
  - Pain in extremity [Fatal]
  - Pneumonia [Fatal]
  - Contraindicated product administered [Fatal]
  - Rheumatoid arthritis [Fatal]
  - Pain [Fatal]
  - Alopecia [Fatal]
  - Condition aggravated [Fatal]
  - Drug hypersensitivity [Fatal]
  - Therapeutic product effect decreased [Fatal]
  - Pericarditis [Fatal]
  - General physical health deterioration [Fatal]
  - Synovitis [Fatal]
  - Discomfort [Fatal]
  - Retinitis [Fatal]
  - Hypersensitivity [Fatal]
  - Wound [Fatal]
  - Off label use [Fatal]
  - Laryngitis [Fatal]
  - Crohn^s disease [Fatal]
  - Oedema peripheral [Fatal]
  - Rash [Fatal]
  - Hand deformity [Fatal]
  - Therapeutic product effect incomplete [Fatal]
  - Red blood cell sedimentation rate increased [Fatal]
  - Psoriasis [Fatal]
  - Arthritis [Fatal]
  - Glossodynia [Fatal]
  - Vomiting [Fatal]
  - Drug ineffective [Fatal]
  - Fatigue [Fatal]
  - Maternal exposure during pregnancy [Fatal]
